FAERS Safety Report 10167829 (Version 2)
Quarter: 2014Q2

REPORT INFORMATION
  Report Type: Spontaneous
  Country: US (occurrence: US)
  Receive Date: 20140512
  Receipt Date: 20140612
  Transmission Date: 20141212
  Serious: Yes (Other)
  Sender: FDA-Public Use
  Company Number: US-PFIZER INC-2014127466

PATIENT
  Age: 64 Year
  Sex: Female
  Weight: 54.42 kg

DRUGS (3)
  1. LYRICA [Suspect]
     Indication: FIBROMYALGIA
     Dosage: 50 MG (ONE CAPSULE), 2X/DAY
     Route: 048
     Dates: start: 20101222
  2. LYRICA [Suspect]
     Indication: POST HERPETIC NEURALGIA
  3. SAVELLA [Concomitant]
     Dosage: UNK

REACTIONS (3)
  - Glaucoma [Unknown]
  - Cataract [Unknown]
  - Hypertension [Unknown]
